FAERS Safety Report 25067037 (Version 2)
Quarter: 2025Q2

REPORT INFORMATION
  Report Type: Spontaneous
  Country: FR (occurrence: FR)
  Receive Date: 20250312
  Receipt Date: 20250404
  Transmission Date: 20250716
  Serious: Yes (Hospitalization)
  Sender: TEVA
  Company Number: None

PATIENT
  Age: 77 Year
  Sex: Female
  Weight: 56.7 kg

DRUGS (3)
  1. AZITHROMYCIN [Interacting]
     Active Substance: AZITHROMYCIN
     Indication: Influenza like illness
     Dosage: AZITHROMYCINE
     Route: 048
     Dates: start: 20250103, end: 20250110
  2. WARFARIN SODIUM [Interacting]
     Active Substance: WARFARIN SODIUM
     Indication: Coagulopathy
     Dosage: LONG COURSES 5MG, THEN 4MG (UNSPECIFIED DOSE CHANGE DATE)
     Route: 048
     Dates: start: 19990101, end: 20250109
  3. SOLUPRED [Concomitant]
     Indication: Product used for unknown indication
     Route: 065

REACTIONS (2)
  - Muscle haemorrhage [Recovered/Resolved]
  - International normalised ratio increased [Recovered/Resolved]

NARRATIVE: CASE EVENT DATE: 20250109
